FAERS Safety Report 8483075-2 (Version None)
Quarter: 2012Q2

REPORT INFORMATION
  Report Type: 
  Country: None (occurrence: None)
  Receive Date: 20120625
  Receipt Date: 20120612
  Transmission Date: 20120825
  Serious: Yes (Death)
  Sender: FDA-Public Use
  Company Number: 1253160

PATIENT
  Age: 16 Year
  Sex: Male

DRUGS (7)
  1. DOXORUBICIN HCL [Suspect]
     Indication: PRODUCT USED FOR UNKNOWN INDICATION
     Dosage: 104 MG, SINGLE INTAKE, UNKNOWN, INTRAVENOUS
     Route: 042
     Dates: start: 20120205
  2. LASIX [Concomitant]
  3. CYCLOPHOSPHAMIDE [Suspect]
     Indication: PRODUCT USED FOR UNKNOWN INDICATION
     Dosage: 432 MG MILLIGRAM(S) (1 DAY) INTRAVENOUS (NOT OTHERWISE SPECIFIED)
     Route: 042
     Dates: start: 20120205, end: 20120207
  4. PREDNISOLONE [Concomitant]
  5. VINCRISTINE SULFATE [Suspect]
     Indication: PRODUCT USED FOR UNKNOWN INDICATION
     Dosage: 2 MG, SINGLE INTAKE (UNKNOWN) INTRAVENOUS DRIP
     Route: 041
     Dates: start: 20120204
  6. METHOTREXATE [Suspect]
     Indication: PRODUCT USED FOR UNKNOWN INDICATION
     Dosage: 5193 MG, SINGLE INTAKE (UNKNOWN) 15 MG MILLIGRAM(S) (UNKNOWN) INTRAVENOUS DRIP INTRATHECAL
     Route: 041
     Dates: start: 20120204
  7. (MABTHERA) [Suspect]
     Indication: PRODUCT USED FOR UNKNOWN INDICATION
     Dosage: 650 MG, SINGLE INTAKE (UNKNOWN) INTRAVENOUS (NOT OTHERWISE SPECIFIED)
     Route: 042
     Dates: start: 20120202

REACTIONS (14)
  - MULTI-ORGAN FAILURE [None]
  - HEPATITIS FULMINANT [None]
  - HEPATIC FAILURE [None]
  - ASTHENIA [None]
  - BICYTOPENIA [None]
  - HEPATOSPLENOMEGALY [None]
  - ACUTE PULMONARY OEDEMA [None]
  - PLATELET COUNT DECREASED [None]
  - ALANINE AMINOTRANSFERASE INCREASED [None]
  - WHITE BLOOD CELL COUNT DECREASED [None]
  - TOXIC EPIDERMAL NECROLYSIS [None]
  - ASPARTATE AMINOTRANSFERASE INCREASED [None]
  - ANAEMIA [None]
  - BLOOD BILIRUBIN INCREASED [None]
